FAERS Safety Report 17367432 (Version 1)
Quarter: 2020Q1

REPORT INFORMATION
  Report Type: Report from Study
  Country: US (occurrence: US)
  Receive Date: 20200204
  Receipt Date: 20200204
  Transmission Date: 20200409
  Serious: Yes (Other)
  Sender: FDA-Public Use
  Company Number: US-ELI_LILLY_AND_COMPANY-US202001011374

PATIENT
  Sex: Female

DRUGS (2)
  1. TERIPARATIDE [Suspect]
     Active Substance: TERIPARATIDE
     Indication: PRODUCT USED FOR UNKNOWN INDICATION
     Dosage: UNK UNK, UNKNOWN
     Route: 065
     Dates: start: 20191210, end: 20191226
  2. TERIPARATIDE [Suspect]
     Active Substance: TERIPARATIDE
     Dosage: UNK UNK, UNKNOWN
     Route: 065
     Dates: start: 20200101

REACTIONS (14)
  - Arthralgia [Not Recovered/Not Resolved]
  - Abdominal discomfort [Unknown]
  - Neuralgia [Not Recovered/Not Resolved]
  - Dizziness [Unknown]
  - Sciatica [Not Recovered/Not Resolved]
  - Hypoaesthesia [Not Recovered/Not Resolved]
  - Blood parathyroid hormone decreased [Unknown]
  - Nerve compression [Not Recovered/Not Resolved]
  - Pain [Not Recovered/Not Resolved]
  - Spinal fracture [Unknown]
  - Muscle spasms [Unknown]
  - Mobility decreased [Unknown]
  - Fatigue [Unknown]
  - Parathyroid disorder [Unknown]

NARRATIVE: CASE EVENT DATE: 20191210
